FAERS Safety Report 18851600 (Version 1)
Quarter: 2021Q1

REPORT INFORMATION
  Report Type: Spontaneous
  Country: US (occurrence: US)
  Receive Date: 20210204
  Receipt Date: 20210204
  Transmission Date: 20210420
  Serious: Yes (Other)
  Sender: FDA-Public Use
  Company Number: None

PATIENT
  Age: 40 Year
  Sex: Female
  Weight: 113.8 kg

DRUGS (12)
  1. REPATHA [Concomitant]
     Active Substance: EVOLOCUMAB
  2. COENZYME Q?10 100MG [Concomitant]
  3. PRENATABS FA 29?1MG [Concomitant]
  4. LIVALO 4MG [Concomitant]
  5. SERTRALINE HCL 50MG [Concomitant]
     Active Substance: SERTRALINE HYDROCHLORIDE
  6. PRALUENT [Suspect]
     Active Substance: ALIROCUMAB
     Indication: TYPE IIA HYPERLIPIDAEMIA
     Dosage: ?          OTHER FREQUENCY:EVERY OTHER WEEK;?
     Route: 058
     Dates: start: 20200813, end: 20201216
  7. ZINC?220 [Concomitant]
  8. VITAMIN D3 1.25MG [Concomitant]
  9. CALCIUM 600MG [Concomitant]
  10. LEVOTHYROXINE SODIUM 25MCG [Concomitant]
     Active Substance: LEVOTHYROXINE SODIUM
  11. MAGNESIUM CITRATE 100MG [Concomitant]
  12. LARIN 24 FE 1?20MG [Concomitant]

REACTIONS (1)
  - Injection site reaction [None]

NARRATIVE: CASE EVENT DATE: 20201216
